FAERS Safety Report 23522171 (Version 1)
Quarter: 2024Q1

REPORT INFORMATION
  Report Type: Spontaneous
  Country: US (occurrence: US)
  Receive Date: 20240214
  Receipt Date: 20240214
  Transmission Date: 20240409
  Serious: No
  Sender: FDA-Public Use
  Company Number: US-SA-SAC20240213000964

PATIENT
  Age: 55 Year
  Sex: Female

DRUGS (2)
  1. DUPIXENT [Suspect]
     Active Substance: DUPILUMAB
     Indication: Nasal polyps
     Dosage: 300 MG, QOW
     Route: 058
  2. DUPIXENT [Suspect]
     Active Substance: DUPILUMAB
     Indication: Asthma

REACTIONS (8)
  - Bronchitis bacterial [Recovered/Resolved]
  - Sputum discoloured [Recovered/Resolved]
  - Cough [Recovered/Resolved]
  - Influenza [Unknown]
  - Brain fog [Unknown]
  - Amnesia [Unknown]
  - Aphasia [Unknown]
  - Vision blurred [Unknown]
